FAERS Safety Report 18569837 (Version 1)
Quarter: 2020Q4

REPORT INFORMATION
  Report Type: Spontaneous
  Country: US (occurrence: US)
  Receive Date: 20201202
  Receipt Date: 20201202
  Transmission Date: 20210114
  Serious: No
  Sender: FDA-Public Use
  Company Number: None

PATIENT
  Age: 64 Year
  Sex: Female
  Weight: 76.5 kg

DRUGS (1)
  1. CYMBALTA [Suspect]
     Active Substance: DULOXETINE HYDROCHLORIDE
     Indication: GENERALISED ANXIETY DISORDER

REACTIONS (6)
  - Nausea [None]
  - Vertigo [None]
  - Diarrhoea [None]
  - Fatigue [None]
  - Influenza like illness [None]
  - Muscle spasms [None]

NARRATIVE: CASE EVENT DATE: 20201202
